FAERS Safety Report 4284984-0 (Version None)
Quarter: 2004Q1

REPORT INFORMATION
  Report Type: 
  Country: None (occurrence: None)
  Receive Date: 20040202
  Receipt Date: 20040119
  Transmission Date: 20041129
  Serious: Yes (Hospitalization)
  Sender: FDA-Public Use
  Company Number: NSADSS2002034352

PATIENT
  Age: 61 Year
  Sex: Female
  Weight: 110.2241 kg

DRUGS (14)
  1. REMICADE [Suspect]
     Indication: RHEUMATOID ARTHRITIS
     Dosage: SEE IMAGE
     Route: 041
     Dates: start: 20020624, end: 20020624
  2. REMICADE [Suspect]
     Indication: RHEUMATOID ARTHRITIS
     Dosage: SEE IMAGE
     Route: 041
     Dates: start: 20020715, end: 20020715
  3. REMICADE [Suspect]
     Indication: RHEUMATOID ARTHRITIS
     Dosage: SEE IMAGE
     Route: 041
     Dates: start: 20020812, end: 20020812
  4. REMICADE [Suspect]
     Indication: RHEUMATOID ARTHRITIS
     Dosage: SEE IMAGE
     Route: 041
     Dates: start: 20020906, end: 20020906
  5. REMICADE [Suspect]
     Indication: RHEUMATOID ARTHRITIS
     Dosage: SEE IMAGE
     Route: 041
     Dates: start: 20020926, end: 20020926
  6. NITROGLYCERIN PATCH (GLYCERYL TRINITRATE) [Concomitant]
  7. TOPROL-XL [Concomitant]
  8. VERAPAMIL [Concomitant]
  9. SYNTHROID [Concomitant]
  10. PREMARIN [Concomitant]
  11. PROTONIX [Concomitant]
  12. PREDNISONE [Concomitant]
  13. METHADONE HCL [Concomitant]
  14. ASPIRIN [Concomitant]

REACTIONS (11)
  - BLOOD PRESSURE DECREASED [None]
  - BUNDLE BRANCH BLOCK LEFT [None]
  - BUNDLE BRANCH BLOCK RIGHT [None]
  - DIZZINESS [None]
  - ELECTROCARDIOGRAM QRS COMPLEX PROLONGED [None]
  - GASTRITIS [None]
  - GASTROINTESTINAL HAEMORRHAGE [None]
  - MUSCULOSKELETAL DISCOMFORT [None]
  - MYOCARDIAL INFARCTION [None]
  - OESOPHAGITIS [None]
  - VENTRICULAR DYSFUNCTION [None]
